FAERS Safety Report 10032238 (Version 2)
Quarter: 2014Q2

REPORT INFORMATION
  Report Type: Spontaneous
  Country: BR (occurrence: BR)
  Receive Date: 20140324
  Receipt Date: 20140527
  Transmission Date: 20141212
  Serious: Yes (Other)
  Sender: FDA-Public Use
  Company Number: PHHY2014BR033526

PATIENT
  Age: 16 Year
  Sex: Female
  Weight: 90 kg

DRUGS (5)
  1. TRILEPTAL [Suspect]
     Indication: CONVULSION
     Dosage: 2 DF, IN THE MORNING AND AT NIGHT
     Dates: start: 20140207
  2. DEPAKOTE [Concomitant]
     Indication: CONVULSION
     Dosage: 500 MG, DAILY
     Route: 048
     Dates: start: 201302
  3. DEPAKOTE [Concomitant]
     Dosage: 250 MG, DAILY
     Route: 048
     Dates: start: 201402
  4. SONEBON [Concomitant]
     Indication: CONVULSION
     Dosage: 2 DF, DAILY
     Route: 048
  5. SONEBON [Concomitant]
     Indication: SLEEP DISORDER

REACTIONS (5)
  - Petit mal epilepsy [Recovering/Resolving]
  - Eye movement disorder [Unknown]
  - Coordination abnormal [Unknown]
  - Convulsion [Recovering/Resolving]
  - Drug-induced liver injury [Recovered/Resolved]
